FAERS Safety Report 6193452-0 (Version None)
Quarter: 2009Q2

REPORT INFORMATION
  Report Type: 
  Country: None (occurrence: None)
  Receive Date: 20090514
  Receipt Date: 20090514
  Transmission Date: 20091009
  Serious: Yes (Hospitalization)
  Sender: FDA-Public Use
  Company Number: None

PATIENT
  Sex: Female
  Weight: 68.0396 kg

DRUGS (2)
  1. OSMOPREP [Suspect]
     Indication: COLONOSCOPY
     Dosage: 20  20 IN 1HOUR15MINUT PO;  12  12 IN 45MINUTES PO
     Route: 048
     Dates: start: 20090330, end: 20090330
  2. OSMOPREP [Suspect]
     Indication: COLONOSCOPY
     Dosage: 20  20 IN 1HOUR15MINUT PO;  12  12 IN 45MINUTES PO
     Route: 048
     Dates: start: 20090331, end: 20090331

REACTIONS (6)
  - ANAEMIA [None]
  - CHEST PAIN [None]
  - DIARRHOEA [None]
  - MALAISE [None]
  - MYOCARDIAL INFARCTION [None]
  - VOMITING [None]
